FAERS Safety Report 10058396 (Version 2)
Quarter: 2014Q2

REPORT INFORMATION
  Report Type: Spontaneous
  Country: CN (occurrence: CN)
  Receive Date: 20140404
  Receipt Date: 20140404
  Transmission Date: 20141212
  Serious: Yes (Other)
  Sender: FDA-Public Use
  Company Number: CN-MILLENNIUM PHARMACEUTICALS, INC.-2012-01922

PATIENT
  Sex: 0

DRUGS (3)
  1. VELCADE [Suspect]
     Indication: PLASMA CELL MYELOMA
     Dosage: 2.0 MG, UNK
     Route: 042
     Dates: start: 201111
  2. THALIDOMIDE [Concomitant]
     Indication: PLASMA CELL MYELOMA
     Dosage: UNK
  3. DEXAMETHASONE [Concomitant]
     Indication: PLASMA CELL MYELOMA

REACTIONS (5)
  - Bone pain [Recovering/Resolving]
  - Swelling [Recovering/Resolving]
  - Weight decreased [Recovering/Resolving]
  - Dyssomnia [Recovering/Resolving]
  - Decreased appetite [Recovering/Resolving]
